FAERS Safety Report 13920520 (Version 1)
Quarter: 2017Q3

REPORT INFORMATION
  Report Type: Spontaneous
  Country: US (occurrence: None)
  Receive Date: 20170829
  Receipt Date: 20170829
  Transmission Date: 20171127
  Serious: Yes (Hospitalization)
  Sender: FDA-Public Use
  Company Number: None

PATIENT
  Age: 84 Year
  Sex: Male
  Weight: 75 kg

DRUGS (1)
  1. RIVAROXABAN [Suspect]
     Active Substance: RIVAROXABAN
     Indication: ATRIAL FIBRILLATION
     Dates: start: 20170613, end: 20170725

REACTIONS (5)
  - Haematocrit decreased [None]
  - Gastric ulcer [None]
  - Haemoglobin decreased [None]
  - Gastrointestinal haemorrhage [None]
  - Duodenal ulcer [None]

NARRATIVE: CASE EVENT DATE: 20170725
